FAERS Safety Report 24247047 (Version 1)
Quarter: 2024Q3

REPORT INFORMATION
  Report Type: Spontaneous
  Country: BE (occurrence: BE)
  Receive Date: 20240826
  Receipt Date: 20240826
  Transmission Date: 20241017
  Serious: Yes (Other)
  Sender: UCB
  Company Number: BE-UCBSA-2024003052

PATIENT
  Age: 62 Year
  Sex: Female

DRUGS (7)
  1. BIMZELX [Suspect]
     Active Substance: BIMEKIZUMAB-BKZX
     Indication: Psoriasis
     Dosage: UNK
     Dates: start: 20230921
  2. CLINDAMYCIN [Concomitant]
     Active Substance: CLINDAMYCIN
     Indication: Pseudomonas infection
     Dosage: UNK
     Route: 048
  3. CLINDAMYCIN [Concomitant]
     Active Substance: CLINDAMYCIN
     Indication: Staphylococcal infection
  4. ACETIC ACID [Concomitant]
     Active Substance: ACETIC ACID
     Indication: Pseudomonas infection
     Dosage: UNK
     Route: 061
  5. ACETIC ACID [Concomitant]
     Active Substance: ACETIC ACID
     Indication: Staphylococcal infection
  6. SILVER SULFADIAZINE [Concomitant]
     Active Substance: SILVER SULFADIAZINE
     Indication: Pseudomonas infection
     Dosage: UNK
     Route: 061
  7. SILVER SULFADIAZINE [Concomitant]
     Active Substance: SILVER SULFADIAZINE
     Indication: Staphylococcal infection

REACTIONS (4)
  - Pseudomonas infection [Unknown]
  - Staphylococcal infection [Unknown]
  - Otitis externa [Recovered/Resolved]
  - Oral candidiasis [Recovered/Resolved]

NARRATIVE: CASE EVENT DATE: 20231101
